FAERS Safety Report 8346237-0 (Version None)
Quarter: 2012Q2

REPORT INFORMATION
  Report Type: 
  Country: None (occurrence: None)
  Receive Date: 20120507
  Receipt Date: 20120423
  Transmission Date: 20120825
  Serious: Yes (Disabling, Other)
  Sender: FDA-Public Use
  Company Number: 2012-001055

PATIENT
  Age: 79 Year
  Sex: Female
  Weight: 60.8 kg

DRUGS (6)
  1. IMURAN [Concomitant]
  2. ATIVAN [Concomitant]
  3. ACTONEL [Suspect]
     Dosage: 150 MG, ONE DOSE ONLY, ORAL
     Route: 048
     Dates: start: 20120209, end: 20120209
  4. RESTORIL /00393701/ (TEMAZEPAM) [Concomitant]
  5. PREDNISONE TAB [Concomitant]
  6. ELAVIL /00002202/ (AMITRIPTYLINE HYDROCHLORIDE) [Concomitant]

REACTIONS (6)
  - JOINT CREPITATION [None]
  - OESOPHAGEAL CARCINOMA [None]
  - ARTHRALGIA [None]
  - PAIN IN JAW [None]
  - MYALGIA [None]
  - FEELING ABNORMAL [None]
